FAERS Safety Report 19643447 (Version 2)
Quarter: 2021Q3

REPORT INFORMATION
  Report Type: Spontaneous
  Country: US (occurrence: US)
  Receive Date: 20210730
  Receipt Date: 20210917
  Transmission Date: 20211014
  Serious: Yes (Other)
  Sender: FDA-Public Use
  Company Number: US-JNJFOC-20210753355

PATIENT
  Sex: Male

DRUGS (1)
  1. NEUTROGENA ULTRA SHEER BODY MIST SUNSCREEN BROAD SPECTRUM SPF 100 PLUS [Suspect]
     Active Substance: AVOBENZONE\HOMOSALATE\OCTISALATE\OCTOCRYLENE\OXYBENZONE
     Indication: PROPHYLAXIS AGAINST SOLAR RADIATION
     Dosage: 1 LONG CONTINUOUS SPRAY TO COVER FACE, NECK, ARMS, AND TORSO, THEN ON WEEKENDS SINCE THEN
     Route: 061

REACTIONS (2)
  - Renal cancer [Recovered/Resolved]
  - Prostate cancer [Recovered/Resolved]
